FAERS Safety Report 4705674-3 (Version None)
Quarter: 2005Q2

REPORT INFORMATION
  Report Type: 
  Country: None (occurrence: None)
  Receive Date: 20050629
  Receipt Date: 20050617
  Transmission Date: 20051028
  Serious: Yes (Hospitalization)
  Sender: FDA-Public Use
  Company Number: 200505219

PATIENT
  Age: 94 Year
  Sex: Female

DRUGS (1)
  1. BETAGAN [Suspect]
     Indication: GLAUCOMA
     Dosage: 1 DROP BID EYE
     Dates: start: 20041101, end: 20050524

REACTIONS (2)
  - ATRIAL FIBRILLATION [None]
  - BRADYCARDIA [None]
